FAERS Safety Report 4590321-4 (Version None)
Quarter: 2005Q1

REPORT INFORMATION
  Report Type: 
  Country: None (occurrence: None)
  Receive Date: 20050217
  Receipt Date: 20050203
  Transmission Date: 20050727
  Serious: Yes (Life-Threatening, Hospitalization)
  Sender: FDA-Public Use
  Company Number: 2004117036

PATIENT
  Age: 72 Year
  Sex: Female
  Weight: 47.6277 kg

DRUGS (1)
  1. BEXTRA [Suspect]
     Indication: ANALGESIC EFFECT
     Dates: start: 20030810, end: 20040930

REACTIONS (3)
  - FACIAL BONES FRACTURE [None]
  - LOSS OF CONSCIOUSNESS [None]
  - SUPRAVENTRICULAR TACHYCARDIA [None]
